FAERS Safety Report 9022941 (Version 2)
Quarter: 2014Q1

REPORT INFORMATION
  Report Type: Spontaneous
  Country: US (occurrence: US)
  Receive Date: 20130120
  Receipt Date: 20140206
  Transmission Date: 20141002
  Serious: No
  Sender: FDA-Public Use
  Company Number: US-ALLERGAN-1216234US

PATIENT
  Age: 47 Year
  Sex: Male

DRUGS (7)
  1. BOTOX COSMETIC [Suspect]
     Indication: SKIN WRINKLING
     Dosage: 60 UNITS, SINGLE
     Dates: start: 201306, end: 201306
  2. BOTOX COSMETIC [Suspect]
     Dosage: 40 UNITS, SINGLE
     Route: 030
     Dates: start: 20130228, end: 20130228
  3. BOTOX COSMETIC [Suspect]
     Dosage: 20 UNITS, SINGLE
     Route: 030
     Dates: start: 201210, end: 201210
  4. BOTOX COSMETIC [Suspect]
     Dosage: UNK UNK, SINGLE
     Route: 030
     Dates: start: 2011, end: 2011
  5. BOTOX COSMETIC [Suspect]
     Dosage: 20 UNITS, SINGLE
     Route: 030
     Dates: start: 2011, end: 2011
  6. ALLEGRA                            /01314201/ [Concomitant]
     Indication: HYPERSENSITIVITY
     Dosage: 180 MG, UNK
     Route: 030
  7. ALLEGRA                            /01314201/ [Concomitant]
     Dosage: UNK

REACTIONS (6)
  - Drug ineffective [Unknown]
  - Drug ineffective [Unknown]
  - Drug ineffective [Unknown]
  - Eyelid ptosis [Unknown]
  - Drug ineffective [Unknown]
  - Drug ineffective [Unknown]
